FAERS Safety Report 5999826-2 (Version None)
Quarter: 2008Q4

REPORT INFORMATION
  Report Type: 
  Country: None (occurrence: None)
  Receive Date: 20081215
  Receipt Date: 20081208
  Transmission Date: 20090506
  Serious: Yes (Hospitalization)
  Sender: FDA-Public Use
  Company Number: DK-AVENTIS-200821315GDDC

PATIENT
  Age: 61 Year
  Sex: Female
  Weight: 91.7 kg

DRUGS (10)
  1. LANTUS [Suspect]
     Route: 058
     Dates: start: 20081010
  2. NOVORAPID [Concomitant]
     Dosage: DOSE: 18/14/32
     Route: 058
  3. RAMIPRIL [Concomitant]
     Dosage: DOSE QUANTITY: 1
  4. MAGNYL [Concomitant]
     Dosage: DOSE QUANTITY: 1
  5. REMERON [Concomitant]
     Dosage: DOSE QUANTITY: 1
  6. ZOCOR [Concomitant]
     Dosage: DOSE QUANTITY: 1
  7. APROVEL [Concomitant]
     Dosage: DOSE QUANTITY: 1
  8. IMIPRAMINE [Concomitant]
     Dosage: DOSE: 25 MG 2 STK. NOCTE
  9. ZANIDIP [Concomitant]
     Dosage: DOSE QUANTITY: 1
  10. CENTYL K [Concomitant]
     Dosage: DOSE QUANTITY: 1

REACTIONS (3)
  - HYPOGLYCAEMIA [None]
  - OVERDOSE [None]
  - ROAD TRAFFIC ACCIDENT [None]
